FAERS Safety Report 5059419-0 (Version None)
Quarter: 2006Q3

REPORT INFORMATION
  Report Type: 
  Country: None (occurrence: None)
  Receive Date: 20060724
  Receipt Date: 20060713
  Transmission Date: 20061208
  Serious: Yes (Death, Life-Threatening, Other)
  Sender: FDA-Public Use
  Company Number: GB-JNJFOC-20060102401

PATIENT
  Sex: Female
  Weight: 53 kg

DRUGS (8)
  1. REMICADE [Suspect]
     Indication: RHEUMATOID ARTHRITIS
     Route: 042
  2. METHOTREXATE SODIUM [Concomitant]
     Route: 065
  3. PREDNISOLONE [Concomitant]
     Route: 065
  4. CO-PROXAMOL [Concomitant]
     Route: 065
  5. FOLIC ACID [Concomitant]
     Route: 065
  6. LISINOPRIL [Concomitant]
     Route: 065
  7. RISEDRONATE [Concomitant]
     Route: 065
  8. CALCICHEW [Concomitant]
     Route: 065

REACTIONS (3)
  - BILE DUCT CANCER [None]
  - METASTATIC NEOPLASM [None]
  - SEPSIS [None]
